FAERS Safety Report 9208878 (Version 1)
Quarter: 2013Q1

REPORT INFORMATION
  Report Type: Spontaneous
  Country: US (occurrence: None)
  Receive Date: 20120817
  Receipt Date: 20120817
  Transmission Date: 20140127
  Serious: Yes (Other)
  Sender: FDA-Public Use
  Company Number: ADR-2012-00113

PATIENT
  Sex: Male

DRUGS (4)
  1. BACLOFEN INTRATHECAL (BACLOFEN INJECTION) [Suspect]
     Indication: PAIN
  2. BACLOFEN INTRATHECAL (BACLOFEN INJECTION) [Suspect]
     Indication: BACK PAIN
  3. MORPHINE (INTRATHECAL) [Concomitant]
  4. BUPIVACAINE (INTRATHECAL) [Concomitant]

REACTIONS (1)
  - Drug withdrawal syndrome [None]
